FAERS Safety Report 7811410-4 (Version None)
Quarter: 2011Q4

REPORT INFORMATION
  Report Type: 
  Country: None (occurrence: None)
  Receive Date: 20111013
  Receipt Date: 20111005
  Transmission Date: 20120403
  Serious: Yes (Other)
  Sender: FDA-Public Use
  Company Number: DE-BRISTOL-MYERS SQUIBB COMPANY-16145310

PATIENT
  Age: 28 Year
  Sex: Female
  Weight: 68 kg

DRUGS (7)
  1. NUVARING [Concomitant]
     Indication: CONTRACEPTION
     Route: 067
  2. CEFUROXIME [Concomitant]
     Dosage: PARENT ROUTE OF ADMINISTRATION:IV.
     Route: 042
  3. FOLIO [Concomitant]
     Indication: PROPHYLAXIS
     Dosage: PARENT ROUTE OF ADMINISTRATION: ORAL.
     Route: 048
  4. DEXAMETHASONE [Concomitant]
     Dosage: PARENT ROUTE OF ADMINISTRATION:IM.
     Route: 030
     Dates: start: 20090221, end: 20090222
  5. HEPARIN SODIUM [Suspect]
     Indication: HEART VALVE REPLACEMENT
     Dosage: PARENT ROUTE OF ADMINISTRATION: SUBCUTANEOUS.
     Route: 058
     Dates: start: 20080828, end: 20081010
  6. ATOSIBAN [Concomitant]
     Dosage: PARENT ROUTE OF ADMINISTRATION:IV.
     Route: 042
  7. COUMADIN [Suspect]
     Indication: HEART VALVE REPLACEMENT
     Dosage: DAILY DOSE 37.5 MG/WK, PARENT ROUTE OF ADMINISTRATION:ORAL.
     Route: 048
     Dates: start: 20080710, end: 20090220

REACTIONS (3)
  - LIVE BIRTH [None]
  - PREMATURE RUPTURE OF MEMBRANES [None]
  - PREGNANCY [None]
